FAERS Safety Report 10060615 (Version 1)
Quarter: 2014Q2

REPORT INFORMATION
  Report Type: Spontaneous
  Country: JP (occurrence: JP)
  Receive Date: 20140404
  Receipt Date: 20140404
  Transmission Date: 20141212
  Serious: Yes (Hospitalization)
  Sender: FDA-Public Use
  Company Number: JP-BAYER-2014-048591

PATIENT
  Age: 59 Year
  Sex: Male
  Weight: 61.22 kg

DRUGS (3)
  1. ACETYLSALICYLIC ACID({=100 MG) [Suspect]
     Indication: CEREBRAL INFARCTION
     Dosage: DAILY DOSE 200 MG
     Route: 048
     Dates: start: 2012, end: 2012
  2. UNFRACTIONATED HEPARIN [Suspect]
     Indication: CEREBRAL INFARCTION
     Dosage: DAILY DOSE 10000 U
     Route: 042
     Dates: start: 2012, end: 2012
  3. EDARAVONE [Concomitant]
     Indication: CEREBRAL INFARCTION
     Dosage: UNK
     Route: 041
     Dates: start: 2012

REACTIONS (4)
  - Pericardial haemorrhage [Recovered/Resolved]
  - Cardiac tamponade [None]
  - Pleural effusion [Recovered/Resolved]
  - Labelled drug-drug interaction medication error [None]
